FAERS Safety Report 25611516 (Version 1)
Quarter: 2025Q3

REPORT INFORMATION
  Report Type: Spontaneous
  Country: US (occurrence: US)
  Receive Date: 20250728
  Receipt Date: 20250728
  Transmission Date: 20251021
  Serious: Yes (Death, Hospitalization, Other)
  Sender: ALEMBIC
  Company Number: US-ALEMBIC PHARMACUETICALS LIMITED-2025SCAL000883

PATIENT

DRUGS (2)
  1. BUPROPION HYDROCHLORIDE [Suspect]
     Active Substance: BUPROPION HYDROCHLORIDE
     Indication: Product used for unknown indication
     Route: 048
  2. PROPRANOLOL [Suspect]
     Active Substance: PROPRANOLOL HYDROCHLORIDE
     Indication: Alcohol use disorder
     Route: 065

REACTIONS (13)
  - Cardiotoxicity [None]
  - Intentional self-injury [Fatal]
  - Blood lactic acid increased [None]
  - Bundle branch block right [Unknown]
  - Left ventricular dysfunction [Unknown]
  - Metabolic acidosis [None]
  - Lethargy [None]
  - Seizure [None]
  - Electrocardiogram QRS complex prolonged [Fatal]
  - Ventricular tachycardia [Fatal]
  - Intentional overdose [Fatal]
  - Drug level increased [Unknown]
  - Hypotension [Unknown]
